FAERS Safety Report 4888566-9 (Version None)
Quarter: 2005Q4

REPORT INFORMATION
  Report Type: 
  Country: None (occurrence: None)
  Receive Date: 20051215
  Receipt Date: 20050614
  Transmission Date: 20060501
  Serious: Yes (Hospitalization, Other)
  Sender: FDA-Public Use
  Company Number: 2005057696

PATIENT
  Sex: Female
  Weight: 53.5244 kg

DRUGS (8)
  1. BEXTRA [Suspect]
     Indication: SPINAL OSTEOARTHRITIS
     Dosage: 10 MG (10 MG 1 IN 1 D) ORAL
     Route: 048
     Dates: start: 20020521
  2. LIPITOR [Concomitant]
  3. PREMARIN [Concomitant]
  4. IMDUR [Concomitant]
  5. NORVASC [Concomitant]
  6. ATROVENT [Concomitant]
  7. FLOVENT [Concomitant]
  8. ALBUTEROL [Concomitant]

REACTIONS (11)
  - ARTHRALGIA [None]
  - COLONIC POLYP [None]
  - CORONARY ARTERY OCCLUSION [None]
  - FEELING ABNORMAL [None]
  - HYPERTENSION [None]
  - PAIN [None]
  - RASH PRURITIC [None]
  - RESPIRATORY DISORDER [None]
  - SINUSITIS [None]
  - SKIN EXFOLIATION [None]
  - WEIGHT DECREASED [None]
